FAERS Safety Report 12471338 (Version 1)
Quarter: 2016Q2

REPORT INFORMATION
  Report Type: Spontaneous
  Country: US (occurrence: US)
  Receive Date: 20160616
  Receipt Date: 20160616
  Transmission Date: 20160815
  Serious: No
  Sender: FDA-Public Use
  Company Number: US-PFIZER INC-2016258201

PATIENT
  Age: 44 Year
  Sex: Female

DRUGS (1)
  1. XELJANZ [Suspect]
     Active Substance: TOFACITINIB CITRATE
     Indication: CROHN^S DISEASE
     Dosage: 10MG (2 TABLETS) TWICE DALLY  (XELJANZ TAB 5MG / QUANTITY = 120 /DAY SUPPLY = 30)
     Dates: start: 20160512

REACTIONS (5)
  - Immune system disorder [Unknown]
  - Upper respiratory tract infection [Not Recovered/Not Resolved]
  - Product use issue [Unknown]
  - Prescribed overdose [Unknown]
  - Cough [Unknown]
